FAERS Safety Report 9202650 (Version 1)
Quarter: 2013Q2

REPORT INFORMATION
  Report Type: Other
  Country: GB (occurrence: GB)
  Receive Date: 20130401
  Receipt Date: 20130401
  Transmission Date: 20140414
  Serious: Yes (Hospitalization)
  Sender: FDA-Public Use
  Company Number: GB-WATSON-2013-05239

PATIENT
  Age: 62 Year
  Sex: Female
  Weight: 79 kg

DRUGS (5)
  1. CLARITHROMYCIN (UNKNOWN) [Suspect]
     Indication: COUGH
     Dosage: 500 MG, TID, INDICATION: BAD COUGH AND CHESTY
     Route: 048
     Dates: start: 20120516, end: 20120621
  2. LISINOPRIL [Concomitant]
     Indication: PRODUCT USED FOR UNKNOWN INDICATION
     Dosage: UNK
     Route: 065
  3. ASPIRIN [Concomitant]
     Indication: PRODUCT USED FOR UNKNOWN INDICATION
     Dosage: UNK
     Route: 065
  4. FOLIC ACID [Concomitant]
     Indication: PRODUCT USED FOR UNKNOWN INDICATION
     Dosage: UNK
     Route: 065
  5. ADALIMUMAB [Concomitant]
     Indication: PRODUCT USED FOR UNKNOWN INDICATION
     Dosage: UNK
     Route: 065

REACTIONS (5)
  - Suspiciousness [Recovered/Resolved]
  - Mania [Recovered/Resolved]
  - Anxiety [Recovered/Resolved]
  - Blood sodium decreased [Recovered/Resolved]
  - Mental disorder [Recovered/Resolved]
